FAERS Safety Report 8850255 (Version 1)
Quarter: 2012Q4

REPORT INFORMATION
  Report Type: 
  Country: US (occurrence: US)
  Receive Date: 20121019
  Receipt Date: 20121019
  Transmission Date: 20130627
  Serious: Yes (Other)
  Sender: FDA-Public Use
  Company Number: CHPA2012US011565

PATIENT
  Age: 83 Year
  Sex: Female

DRUGS (1)
  1. VOLTAREN GEL [Suspect]
     Indication: OSTEOARTHRITIS
     Dosage: Unk, Unk
     Route: 061
     Dates: start: 2011

REACTIONS (3)
  - Arthropod bite [Recovered/Resolved]
  - Oedema peripheral [Recovered/Resolved]
  - Wrong technique in drug usage process [Unknown]
